FAERS Safety Report 17573118 (Version 4)
Quarter: 2020Q2

REPORT INFORMATION
  Report Type: Spontaneous
  Country: US (occurrence: US)
  Receive Date: 20200323
  Receipt Date: 20200430
  Transmission Date: 20200713
  Serious: Yes (Death, Hospitalization, Other)
  Sender: FDA-Public Use
  Company Number: US-ACTELION-A-US2020-203190

PATIENT
  Age: 77 Year
  Sex: Male

DRUGS (19)
  1. GABAPENTIN. [Concomitant]
     Active Substance: GABAPENTIN
  2. PULMICORT TURBUHALER [Concomitant]
     Active Substance: BUDESONIDE
  3. SYNTHROID [Concomitant]
     Active Substance: LEVOTHYROXINE SODIUM
  4. HEPARIN [Concomitant]
     Active Substance: HEPARIN SODIUM
  5. LASIX [Concomitant]
     Active Substance: FUROSEMIDE
  6. VITAMIN B12 [Concomitant]
     Active Substance: CYANOCOBALAMIN
  7. OPSUMIT [Suspect]
     Active Substance: MACITENTAN
     Indication: PULMONARY ARTERIAL HYPERTENSION
     Dosage: 10 MG, QD
     Route: 048
     Dates: start: 20200224, end: 20200229
  8. FOLIC ACID. [Concomitant]
     Active Substance: FOLIC ACID
  9. VITAMIN D3 [Concomitant]
     Active Substance: CHOLECALCIFEROL
  10. PROBIOTIC [Concomitant]
     Active Substance: PROBIOTICS NOS
  11. DUONEB [Concomitant]
     Active Substance: ALBUTEROL SULFATE\IPRATROPIUM BROMIDE
  12. ADEMPAS [Concomitant]
     Active Substance: RIOCIGUAT
  13. MAGNESIUM [Concomitant]
     Active Substance: MAGNESIUM
  14. METFORMIN [Concomitant]
     Active Substance: METFORMIN HYDROCHLORIDE
     Indication: ESSENTIAL HYPERTENSION
  15. NACL [Concomitant]
     Active Substance: SODIUM CHLORIDE
  16. LIPITOR [Concomitant]
     Active Substance: ATORVASTATIN CALCIUM
  17. ELIQUIS [Concomitant]
     Active Substance: APIXABAN
  18. BUSPON [Concomitant]
     Active Substance: BUTYLSCOPOLAMINE
  19. AUGMENTIN BD [Concomitant]
     Active Substance: AMOXICILLIN\CLAVULANIC ACID

REACTIONS (22)
  - Swelling [Unknown]
  - Blood pressure decreased [Unknown]
  - Catheterisation cardiac [Unknown]
  - Terminal state [Unknown]
  - Acute myocardial infarction [Unknown]
  - Condition aggravated [Unknown]
  - Atrial fibrillation [Unknown]
  - Oedema [Unknown]
  - Respiratory failure [Fatal]
  - Hyponatraemia [Unknown]
  - Hospice care [Unknown]
  - Pulmonary hypertension [Fatal]
  - Hypoxia [Unknown]
  - Bedridden [Unknown]
  - Fluid retention [Unknown]
  - Oxygen saturation decreased [Fatal]
  - Dyspnoea [Not Recovered/Not Resolved]
  - Weight increased [Unknown]
  - Urinary tract infection [Unknown]
  - Acute kidney injury [Unknown]
  - Therapy non-responder [Unknown]
  - Sepsis [Unknown]

NARRATIVE: CASE EVENT DATE: 20200229
